FAERS Safety Report 16400795 (Version 2)
Quarter: 2019Q3

REPORT INFORMATION
  Report Type: Report from Study
  Country: US (occurrence: US)
  Receive Date: 20190606
  Receipt Date: 20190711
  Transmission Date: 20191004
  Serious: Yes (Hospitalization)
  Sender: FDA-Public Use
  Company Number: US-EISAI MEDICAL RESEARCH-EC-2019-054258

PATIENT
  Sex: Male

DRUGS (5)
  1. LENVIMA [Suspect]
     Active Substance: LENVATINIB
     Route: 048
     Dates: start: 20190626
  2. LENVIMA [Suspect]
     Active Substance: LENVATINIB
     Route: 048
     Dates: start: 201905, end: 20190618
  3. AMIODARONE [Concomitant]
     Active Substance: AMIODARONE
  4. LENVIMA [Suspect]
     Active Substance: LENVATINIB
     Indication: HEPATIC NEOPLASM
     Route: 048
     Dates: start: 20190322, end: 201905
  5. METOPROLOL. [Concomitant]
     Active Substance: METOPROLOL

REACTIONS (14)
  - Supraventricular tachycardia [Not Recovered/Not Resolved]
  - Pain [Recovered/Resolved]
  - Confusional state [Not Recovered/Not Resolved]
  - Nausea [Recovered/Resolved]
  - Dry mouth [Recovered/Resolved]
  - Decreased appetite [Not Recovered/Not Resolved]
  - Fatigue [Not Recovered/Not Resolved]
  - Dry skin [Recovered/Resolved]
  - Skin exfoliation [Recovered/Resolved]
  - Epistaxis [Not Recovered/Not Resolved]
  - Abdominal discomfort [Recovered/Resolved]
  - Insomnia [Recovered/Resolved]
  - Constipation [Recovered/Resolved]
  - Hypertension [Not Recovered/Not Resolved]

NARRATIVE: CASE EVENT DATE: 2019
